FAERS Safety Report 9210893 (Version 1)
Quarter: 2013Q2

REPORT INFORMATION
  Report Type: Spontaneous
  Country: US (occurrence: US)
  Receive Date: 20130404
  Receipt Date: 20130404
  Transmission Date: 20140414
  Serious: Yes (Other)
  Sender: FDA-Public Use
  Company Number: CHPA2013US005539

PATIENT
  Age: 55 Year
  Sex: Female

DRUGS (6)
  1. IBUPROFEN [Suspect]
     Dosage: UNK, UNK
     Route: 048
     Dates: end: 1993
  2. ALPHA-KERI MOISTURE RICH OIL [Suspect]
     Indication: DRY SKIN
     Dosage: UNK, PRN
     Route: 061
     Dates: start: 1988, end: 201303
  3. ALPHA-KERI MOISTURE RICH OIL [Suspect]
     Indication: PRURITUS
  4. ALPHA-KERI MOISTURE RICH OIL [Suspect]
     Indication: SKIN HAEMORRHAGE
  5. ASPIRIN [Concomitant]
     Indication: HEADACHE
     Dosage: 2 UNK, PRN
  6. ALKA SELTZER PLUS                  /00554101/ [Concomitant]

REACTIONS (6)
  - Hypertension [Not Recovered/Not Resolved]
  - Bronchitis [Not Recovered/Not Resolved]
  - Laceration [Not Recovered/Not Resolved]
  - Skin haemorrhage [Not Recovered/Not Resolved]
  - Gastric haemorrhage [Recovered/Resolved]
  - Pruritus [Recovering/Resolving]
